FAERS Safety Report 8756431 (Version 2)
Quarter: 2012Q4

REPORT INFORMATION
  Report Type: 
  Country: US (occurrence: US)
  Receive Date: 20120828
  Receipt Date: 20121224
  Transmission Date: 20130627
  Serious: Yes (Hospitalization, Other)
  Sender: FDA-Public Use
  Company Number: US-BIOGENIDEC-2012BI032697

PATIENT
  Age: 55 Year
  Sex: Female

DRUGS (3)
  1. TYSABRI [Suspect]
     Indication: MULTIPLE SCLEROSIS
     Route: 042
     Dates: start: 20091217, end: 20101217
  2. TYSABRI [Suspect]
     Indication: MULTIPLE SCLEROSIS
     Route: 042
     Dates: start: 20111004
  3. AMPYRA [Concomitant]
     Indication: MULTIPLE SCLEROSIS

REACTIONS (4)
  - Cystitis [Not Recovered/Not Resolved]
  - Body temperature increased [Unknown]
  - Stress [Not Recovered/Not Resolved]
  - Poor venous access [Not Recovered/Not Resolved]
